FAERS Safety Report 8363697-X (Version None)
Quarter: 2012Q2

REPORT INFORMATION
  Report Type: 
  Country: None (occurrence: None)
  Receive Date: 20120516
  Receipt Date: 20120504
  Transmission Date: 20120825
  Serious: Yes (Other)
  Sender: FDA-Public Use
  Company Number: US-JNJFOC-20101000842

PATIENT
  Sex: Male
  Weight: 53.2 kg

DRUGS (8)
  1. MERCAPTOPURINE [Concomitant]
  2. MESALAMINE [Concomitant]
  3. PRILOSEC [Concomitant]
  4. FLAGYL [Concomitant]
  5. INFLIXIMAB, RECOMBINANT [Suspect]
     Indication: INFLAMMATORY BOWEL DISEASE
     Route: 042
     Dates: start: 20100927
  6. PREDNISONE [Concomitant]
  7. VITAMIN D [Concomitant]
  8. IRON [Concomitant]

REACTIONS (1)
  - LABORATORY TEST ABNORMAL [None]
